FAERS Safety Report 21934577 (Version 1)
Quarter: 2023Q1

REPORT INFORMATION
  Report Type: Spontaneous
  Country: US (occurrence: US)
  Receive Date: 20230201
  Receipt Date: 20230201
  Transmission Date: 20230417
  Serious: No
  Sender: FDA-Public Use
  Company Number: US-Accord-265021

PATIENT
  Age: 37 Year
  Sex: Female

DRUGS (4)
  1. ARIPIPRAZOLE [Suspect]
     Active Substance: ARIPIPRAZOLE
     Indication: Bipolar disorder
     Dosage: STRENGTH: 5MG, EVERY DAY
     Route: 048
     Dates: start: 2021, end: 2021
  2. BUPROPION HYDROCHLORIDE [Suspect]
     Active Substance: BUPROPION HYDROCHLORIDE
     Indication: Product used for unknown indication
     Dates: end: 20220525
  3. OLANZAPINE [Concomitant]
     Active Substance: OLANZAPINE
     Indication: Sleep disorder
     Dosage: 2.5MG DAILY AT BEDTIME
  4. CLONAZEPAM [Concomitant]
     Active Substance: CLONAZEPAM
     Indication: Anxiety
     Route: 048

REACTIONS (6)
  - Nervousness [Recovering/Resolving]
  - Irritability [Recovering/Resolving]
  - Mania [Recovering/Resolving]
  - Nausea [Recovering/Resolving]
  - Off label use [Unknown]
  - Condition aggravated [Recovering/Resolving]

NARRATIVE: CASE EVENT DATE: 20210101
